FAERS Safety Report 11126805 (Version 2)
Quarter: 2015Q2

REPORT INFORMATION
  Report Type: Report from Study
  Country: US (occurrence: US)
  Receive Date: 20150520
  Receipt Date: 20150526
  Transmission Date: 20150821
  Serious: Yes (Hospitalization)
  Sender: FDA-Public Use
  Company Number: PHHO2015US008919

PATIENT
  Age: 75 Year
  Sex: Male
  Weight: 90.25 kg

DRUGS (1)
  1. ZYKADIA [Suspect]
     Active Substance: CERITINIB
     Indication: NON-SMALL CELL LUNG CANCER
     Dosage: 750 MG, QD
     Route: 048
     Dates: start: 20130320, end: 20150514

REACTIONS (1)
  - Localised oedema [Recovering/Resolving]

NARRATIVE: CASE EVENT DATE: 20150512
